FAERS Safety Report 17414748 (Version 1)
Quarter: 2020Q1

REPORT INFORMATION
  Report Type: Spontaneous
  Country: TW (occurrence: TW)
  Receive Date: 20200213
  Receipt Date: 20200213
  Transmission Date: 20200409
  Serious: Yes (Hospitalization)
  Sender: FDA-Public Use
  Company Number: TW-ASTRAZENECA-2020SE18858

PATIENT
  Age: 694 Month
  Sex: Female

DRUGS (1)
  1. LYNPARZA [Suspect]
     Active Substance: OLAPARIB
     Route: 048
     Dates: start: 201910

REACTIONS (3)
  - Rash [Unknown]
  - Septic shock [Unknown]
  - Immune system disorder [Unknown]

NARRATIVE: CASE EVENT DATE: 201912
